FAERS Safety Report 5630404-0 (Version None)
Quarter: 2008Q1

REPORT INFORMATION
  Report Type: 
  Country: None (occurrence: None)
  Receive Date: 20080219
  Receipt Date: 20080208
  Transmission Date: 20080703
  Serious: Yes (Hospitalization)
  Sender: FDA-Public Use
  Company Number: GB-BAXTER-2008BH000398

PATIENT
  Age: 80 Year
  Sex: Male

DRUGS (3)
  1. GAMMAGARD LIQUID [Suspect]
     Indication: DRUG USE FOR UNKNOWN INDICATION
     Route: 042
     Dates: start: 20071204, end: 20071204
  2. GAMMAGARD LIQUID [Suspect]
     Route: 042
     Dates: start: 20071204, end: 20071204
  3. GAMMAGARD LIQUID [Suspect]
     Route: 042
     Dates: end: 20071204

REACTIONS (5)
  - CIRCULATORY COLLAPSE [None]
  - DEHYDRATION [None]
  - HYPOTENSION [None]
  - TRANSIENT ISCHAEMIC ATTACK [None]
  - VOMITING [None]
